FAERS Safety Report 16225731 (Version 7)
Quarter: 2020Q4

REPORT INFORMATION
  Report Type: Spontaneous
  Country: US (occurrence: US)
  Receive Date: 20190422
  Receipt Date: 20201123
  Transmission Date: 20210113
  Serious: Yes (Other)
  Sender: FDA-Public Use
  Company Number: PHEH2019US017297

PATIENT
  Age: 33 Year
  Sex: Female
  Weight: 58.51 kg

DRUGS (2)
  1. ZOFRAN [Suspect]
     Active Substance: ONDANSETRON HYDROCHLORIDE
     Indication: MORNING SICKNESS
     Dosage: 08 MG, TID
     Route: 048
     Dates: start: 20020517, end: 20020701
  2. ZOFRAN [Suspect]
     Active Substance: ONDANSETRON HYDROCHLORIDE
     Indication: PRODUCT USED FOR UNKNOWN INDICATION
     Route: 042

REACTIONS (10)
  - Product use issue [Unknown]
  - Maternal exposure during pregnancy [Unknown]
  - Ovarian hyperstimulation syndrome [Unknown]
  - Pain [Unknown]
  - Premature delivery [Unknown]
  - Emotional distress [Unknown]
  - Weight decreased [Unknown]
  - Product use in unapproved indication [Unknown]
  - Injury [Unknown]
  - Anxiety [Unknown]

NARRATIVE: CASE EVENT DATE: 20021126
